FAERS Safety Report 8218879-4 (Version None)
Quarter: 2012Q1

REPORT INFORMATION
  Report Type: 
  Country: None (occurrence: None)
  Receive Date: 20120319
  Receipt Date: 20120315
  Transmission Date: 20120608
  Serious: Yes (Death, Hospitalization)
  Sender: FDA-Public Use
  Company Number: PHEH2012US005738

PATIENT
  Sex: Male

DRUGS (1)
  1. EXJADE [Suspect]
     Indication: IRON OVERLOAD
     Dosage: 2000 MG, DAILY
     Route: 048
     Dates: start: 20100301

REACTIONS (6)
  - PULMONARY ALVEOLAR HAEMORRHAGE [None]
  - ACUTE MYELOID LEUKAEMIA [None]
  - HAEMOPTYSIS [None]
  - MYELODYSPLASTIC SYNDROME TRANSFORMATION [None]
  - ACUTE RESPIRATORY FAILURE [None]
  - PNEUMONIA [None]
